FAERS Safety Report 16818587 (Version 2)
Quarter: 2019Q3

REPORT INFORMATION
  Report Type: Spontaneous
  Country: US (occurrence: US)
  Receive Date: 20190917
  Receipt Date: 20190927
  Transmission Date: 20191005
  Serious: Yes (Hospitalization, Other)
  Sender: FDA-Public Use
  Company Number: US-TEVA-2019-US-1108537

PATIENT
  Age: 72 Year
  Sex: Male

DRUGS (1)
  1. TRAMADOL. [Suspect]
     Active Substance: TRAMADOL
     Route: 065

REACTIONS (5)
  - Drug use disorder [Unknown]
  - Mental status changes [Recovered/Resolved]
  - Drug withdrawal syndrome [Unknown]
  - Dysarthria [Recovered/Resolved]
  - Ataxia [Recovered/Resolved]
